FAERS Safety Report 14837145 (Version 1)
Quarter: 2018Q2

REPORT INFORMATION
  Report Type: Spontaneous
  Country: MX (occurrence: MX)
  Receive Date: 20180502
  Receipt Date: 20180502
  Transmission Date: 20180711
  Serious: Yes (Other)
  Sender: FDA-Public Use
  Company Number: MX-JNJFOC-20180432518

PATIENT
  Age: 68 Year
  Sex: Male

DRUGS (1)
  1. ZYTIGA [Suspect]
     Active Substance: ABIRATERONE ACETATE
     Indication: PROSTATE CANCER
     Dosage: 23 MONTHS
     Route: 048

REACTIONS (8)
  - Tendon rupture [Unknown]
  - Adrenal insufficiency [Unknown]
  - Colitis [Unknown]
  - Helicobacter infection [Unknown]
  - Spondyloarthropathy [Unknown]
  - Nerve compression [Unknown]
  - Pernicious anaemia [Unknown]
  - Enteritis [Unknown]

NARRATIVE: CASE EVENT DATE: 2017
